FAERS Safety Report 7794205-X (Version None)
Quarter: 2011Q4

REPORT INFORMATION
  Report Type: 
  Country: None (occurrence: None)
  Receive Date: 20111004
  Receipt Date: 20110920
  Transmission Date: 20120403
  Serious: Yes (Other)
  Sender: FDA-Public Use
  Company Number: US-BAYER-201013654NA

PATIENT
  Age: 24 Year
  Sex: Female
  Weight: 113.38 kg

DRUGS (10)
  1. PEPCID [Concomitant]
     Route: 048
  2. FAMOTIDINE [Concomitant]
     Route: 048
  3. YAZ [Suspect]
     Dosage: UNK UNK, UNK
     Route: 048
     Dates: start: 20080101
  4. DARVOCET [Concomitant]
     Route: 048
  5. BISMUTH SUBSALICYLATE [Concomitant]
     Route: 048
  6. IBUPROFEN [Concomitant]
     Route: 048
  7. ZOFRAN [Concomitant]
     Route: 048
  8. FLUCONAZOLE [Concomitant]
     Route: 048
  9. VICODIN [Concomitant]
     Route: 048
  10. SIMVASTATIN [Concomitant]
     Route: 048

REACTIONS (5)
  - HEART RATE IRREGULAR [None]
  - HYPOTHYROIDISM [None]
  - GALLBLADDER DISORDER [None]
  - CHOLELITHIASIS [None]
  - CHOLECYSTITIS [None]
